FAERS Safety Report 6739054-6 (Version None)
Quarter: 2010Q2

REPORT INFORMATION
  Report Type: 
  Country: None (occurrence: None)
  Receive Date: 20100524
  Receipt Date: 20100524
  Transmission Date: 20101027
  Serious: Yes (Hospitalization, Other)
  Sender: FDA-Public Use
  Company Number: None

PATIENT
  Age: 25 Year
  Sex: Female
  Weight: 68.0396 kg

DRUGS (1)
  1. MIRENA [Suspect]
     Indication: CONTRACEPTION
     Dosage: 1 1 VAG
     Route: 067

REACTIONS (29)
  - AGGRESSION [None]
  - ALOPECIA [None]
  - AMENORRHOEA [None]
  - ANGER [None]
  - ANHEDONIA [None]
  - ANXIETY [None]
  - ARTHRALGIA [None]
  - BACK PAIN [None]
  - BALANCE DISORDER [None]
  - BRADYPHRENIA [None]
  - CONFUSIONAL STATE [None]
  - CRYING [None]
  - DEREALISATION [None]
  - DIZZINESS [None]
  - EMOTIONAL DISORDER [None]
  - ENERGY INCREASED [None]
  - FATIGUE [None]
  - FEAR [None]
  - FUNGAL INFECTION [None]
  - HEADACHE [None]
  - IRRITABILITY [None]
  - JOINT LOCK [None]
  - MENTAL IMPAIRMENT [None]
  - MYALGIA [None]
  - PAIN [None]
  - STRESS [None]
  - TACHYPHRENIA [None]
  - TEMPERATURE REGULATION DISORDER [None]
  - VAGINAL LESION [None]
